FAERS Safety Report 11264953 (Version 2)
Quarter: 2015Q3

REPORT INFORMATION
  Report Type: Report from Study
  Country: BE (occurrence: BE)
  Receive Date: 20150713
  Receipt Date: 20150803
  Transmission Date: 20151125
  Serious: Yes (Other)
  Sender: FDA-Public Use
  Company Number: BE-ROCHE-1606593

PATIENT

DRUGS (2)
  1. SOMATROPIN [Suspect]
     Active Substance: SOMATROPIN
     Indication: TURNER^S SYNDROME
  2. SOMATROPIN [Suspect]
     Active Substance: SOMATROPIN
     Indication: HYPOPITUITARISM
     Dosage: MEAN (AND RANGE) HGH DOSE AND DURATION OF THERAPY WERE, RESPECTIVELY, 0-48 (0.36-0.84) IU/KG PER WE
     Route: 065

REACTIONS (1)
  - Melanocytic naevus [Unknown]
